FAERS Safety Report 7931494-2 (Version None)
Quarter: 2011Q4

REPORT INFORMATION
  Report Type: 
  Country: None (occurrence: None)
  Receive Date: 20111121
  Receipt Date: 20111121
  Transmission Date: 20120403
  Serious: Yes (Other)
  Sender: FDA-Public Use
  Company Number: None

PATIENT
  Age: 57 Year
  Sex: Male
  Weight: 95.254 kg

DRUGS (3)
  1. NONE [Concomitant]
  2. PREDNISONE TAB [Suspect]
     Indication: COUGH
     Dosage: 20 MG
     Route: 048
     Dates: start: 20110414, end: 20110418
  3. PREDNISONE TAB [Suspect]
     Indication: NASOPHARYNGITIS
     Dosage: 20 MG
     Route: 048
     Dates: start: 20110414, end: 20110418

REACTIONS (3)
  - DYSSTASIA [None]
  - DRUG DOSE OMISSION [None]
  - MUSCULAR WEAKNESS [None]
